FAERS Safety Report 4630533-4 (Version None)
Quarter: 2005Q2

REPORT INFORMATION
  Report Type: 
  Country: None (occurrence: None)
  Receive Date: 20050408
  Receipt Date: 20050404
  Transmission Date: 20051028
  Serious: Yes (Other)
  Sender: FDA-Public Use
  Company Number: 2005/03/0457

PATIENT
  Age: 55 Year
  Sex: Male
  Weight: 86.4 kg

DRUGS (5)
  1. WELLBUTRIN [Suspect]
     Indication: DEPRESSION
     Dosage: 150MG PER DAY
     Route: 048
     Dates: start: 20041211, end: 20050301
  2. PEG-INTRON [Suspect]
     Indication: HEPATITIS C
     Route: 042
     Dates: start: 20041203
  3. RIBAVIRIN [Suspect]
     Indication: HEPATITIS C
     Route: 048
     Dates: start: 20041203
  4. VICODIN [Concomitant]
     Route: 048
  5. ZIAC [Concomitant]
     Route: 048

REACTIONS (4)
  - ANGER [None]
  - HOMICIDAL IDEATION [None]
  - MOOD ALTERED [None]
  - PARANOIA [None]
